FAERS Safety Report 9072723 (Version 1)
Quarter: 2013Q1

REPORT INFORMATION
  Report Type: Report from Study
  Country: US (occurrence: US)
  Receive Date: 20130128
  Receipt Date: 20130128
  Transmission Date: 20140127
  Serious: No
  Sender: FDA-Public Use
  Company Number: US-ABBOTT-12P-163-0917639-00

PATIENT
  Age: 58 Year
  Sex: Female

DRUGS (25)
  1. HUMIRA 40 MG/0.8 ML PEN [Suspect]
     Indication: COLITIS
     Dates: start: 20120315
  2. HUMIRA 40 MG/0.8 ML PEN [Suspect]
     Indication: DIARRHOEA
  3. HYDROCORTISONE [Concomitant]
     Indication: ADRENAL INSUFFICIENCY
     Dosage: 2 TABS IN AM AND 1 TAB AT SUPPERTIME
  4. LEVOTHYROXINE [Concomitant]
     Indication: HYPOTHYROIDISM
     Dosage: 150 MCG DAILY
  5. ATENOLOL [Concomitant]
     Indication: HYPERTENSION
     Dosage: 25 MG DAILY
  6. METFORMIN [Concomitant]
     Indication: DIABETES MELLITUS
     Dosage: 500 MG DAILY
  7. FUROSEMIDE [Concomitant]
     Indication: SWELLING
     Dosage: 60 MG DAILY
  8. POTASIUM ER [Concomitant]
     Indication: DRUG THERAPY
     Dosage: 10 MEQ, 2 CAPS DAILY
  9. SERTRALINE [Concomitant]
     Indication: ANXIETY
     Dosage: 50 MG, 1 TAB DAILY
  10. FOLIC ACID [Concomitant]
     Indication: BLOOD HOMOCYSTEINE INCREASED
     Dosage: 1 MG DAILY
  11. VITAMIN D3 [Concomitant]
     Indication: PRODUCT USED FOR UNKNOWN INDICATION
     Dosage: 2000 U DAILY
  12. FERROUS SULFATE [Concomitant]
     Indication: PRODUCT USED FOR UNKNOWN INDICATION
     Dosage: 325 MG DAILY
  13. HYDROXYCHLOR [Concomitant]
     Indication: INFLAMMATION
     Dosage: 200 MG, 2 TABS DAILY
  14. ALLEGRA 24 HOUR [Concomitant]
     Indication: SEASONAL ALLERGY
     Dosage: 180 MG, 1 TAB DAILY
  15. PSEUDOEPHEDRINE [Concomitant]
     Indication: SINUS DISORDER
     Dosage: 30 MG DAILY
  16. PSEUDOEPHEDRINE [Concomitant]
     Indication: HYPERSENSITIVITY
  17. BONIVA [Concomitant]
     Indication: OSTEOPENIA
     Dosage: MONTHLY
  18. CATRATE 600 + D [Concomitant]
     Indication: PRODUCT USED FOR UNKNOWN INDICATION
     Dosage: 2 TABS DAILY
  19. SOY SUPPLEMENT [Concomitant]
     Indication: MENOPAUSE
     Dosage: 1 TAB DAILY
  20. TRAMADOL [Concomitant]
     Indication: PAIN
     Dosage: EVERY 4 TO 6 HOURS, AS REQUIRED
  21. WARFARIN [Concomitant]
     Indication: THROMBOSIS
     Dosage: 3 MG DAILY
  22. WARFARIN [Concomitant]
     Indication: FACTOR V DEFICIENCY
  23. WARFARIN [Concomitant]
     Indication: METHYLENETETRAHYDROFOLATE REDUCTASE DEFICIENCY
  24. WARFARIN [Concomitant]
     Indication: BLOOD HOMOCYSTEINE INCREASED
  25. HYDROCORTISONE POWDERED SOLUTION [Concomitant]
     Indication: ADRENAL INSUFFICIENCY
     Dosage: 100MG, INJECT ONE DAILY

REACTIONS (2)
  - Injection site pain [Recovered/Resolved]
  - Headache [Recovered/Resolved]
